FAERS Safety Report 6664666-8 (Version None)
Quarter: 2010Q1

REPORT INFORMATION
  Report Type: 
  Country: None (occurrence: None)
  Receive Date: 20100330
  Receipt Date: 20100319
  Transmission Date: 20100710
  Serious: Yes (Hospitalization)
  Sender: FDA-Public Use
  Company Number: 2010S1000201-001

PATIENT
  Age: 60 Year
  Sex: Male

DRUGS (9)
  1. PITAVASTATIN CALCIUM [Suspect]
     Indication: DYSLIPIDAEMIA
     Dosage: 2MG, PO
     Route: 048
     Dates: start: 20100202
  2. LOSARTAN POTASSIUM/HYDROCHLOROTHIAZIDE [Concomitant]
  3. CILNIDIPINE [Concomitant]
  4. METFORMIN HYDROCHLORIDE [Concomitant]
  5. GLICLAZIDE [Concomitant]
  6. MECOBALAMIN [Concomitant]
  7. CHINESE HERBAL MEDICINE [Concomitant]
  8. INSULIN GLARGINE [Concomitant]
  9. RABEPRAZOLE SODIUM [Concomitant]

REACTIONS (5)
  - ASPARTATE AMINOTRANSFERASE INCREASED [None]
  - BLOOD CREATINE PHOSPHOKINASE INCREASED [None]
  - BLOOD LACTATE DEHYDROGENASE INCREASED [None]
  - CARDIAC FAILURE [None]
  - RESPIRATORY DISORDER [None]
